FAERS Safety Report 25360671 (Version 2)
Quarter: 2025Q3

REPORT INFORMATION
  Report Type: Spontaneous
  Country: US (occurrence: US)
  Receive Date: 20250527
  Receipt Date: 20250729
  Transmission Date: 20251021
  Serious: No
  Sender: SANDOZ
  Company Number: US-SANDOZ-SDZ2025US034368

PATIENT
  Age: 76 Year
  Sex: Female

DRUGS (1)
  1. TIMOLOL MALEATE [Suspect]
     Active Substance: TIMOLOL MALEATE
     Indication: Product used for unknown indication
     Dosage: ONCE EVERY MORNING
     Route: 065

REACTIONS (2)
  - Vision blurred [Unknown]
  - Packaging design issue [Unknown]

NARRATIVE: CASE EVENT DATE: 20250101
